FAERS Safety Report 9797149 (Version 2)
Quarter: 2014Q1

REPORT INFORMATION
  Report Type: Spontaneous
  Country: GB (occurrence: GB)
  Receive Date: 20140106
  Receipt Date: 20140114
  Transmission Date: 20141002
  Serious: Yes (Death)
  Sender: FDA-Public Use
  Company Number: GB-ROCHE-1329024

PATIENT
  Age: 68 Year
  Sex: Male
  Weight: 79 kg

DRUGS (4)
  1. XELODA [Suspect]
     Indication: COLORECTAL CANCER STAGE III
     Route: 048
     Dates: start: 20131001, end: 20131017
  2. DEXAMETHASONE [Concomitant]
  3. ONDANSETRON [Concomitant]
  4. OXALIPLATIN [Concomitant]

REACTIONS (1)
  - Colitis [Fatal]
